FAERS Safety Report 12628986 (Version 1)
Quarter: 2016Q3

REPORT INFORMATION
  Report Type: Spontaneous
  Country: US (occurrence: US)
  Receive Date: 20160808
  Receipt Date: 20160808
  Transmission Date: 20161109
  Serious: No
  Sender: FDA-Public Use
  Company Number: US-ASTRAZENECA-2016SE43159

PATIENT
  Sex: Male
  Weight: 97.5 kg

DRUGS (7)
  1. LIPITOR [Concomitant]
     Active Substance: ATORVASTATIN CALCIUM
     Indication: BLOOD CHOLESTEROL ABNORMAL
     Route: 048
  2. ZYRTEC [Concomitant]
     Active Substance: CETIRIZINE HYDROCHLORIDE
     Indication: MULTIPLE ALLERGIES
     Route: 048
  3. TERAZOSIN [Concomitant]
     Active Substance: TERAZOSIN\TERAZOSIN HYDROCHLORIDE
     Indication: BLOOD PRESSURE ABNORMAL
     Route: 048
  4. VALSTATAN [Concomitant]
     Indication: BLOOD PRESSURE ABNORMAL
     Dosage: DAILY
     Route: 048
  5. FISH OIL [Concomitant]
     Active Substance: FISH OIL
     Dosage: TWO TIMES A DAY
     Route: 048
  6. PULMICORT FLEXHALER [Suspect]
     Active Substance: BUDESONIDE
     Indication: ASTHMA
     Dosage: 1 PUFF TWICE A DAY,
     Route: 055
  7. PULMICORT FLEXHALER [Suspect]
     Active Substance: BUDESONIDE
     Indication: ASTHMA
     Route: 055

REACTIONS (8)
  - Lung disorder [Unknown]
  - Condition aggravated [Unknown]
  - Allergy to chemicals [Unknown]
  - Dyspnoea [Unknown]
  - Burning sensation [Unknown]
  - Oropharyngeal pain [Unknown]
  - Drug ineffective [Unknown]
  - Intentional product use issue [Unknown]
